FAERS Safety Report 25499370 (Version 6)
Quarter: 2025Q4

REPORT INFORMATION
  Report Type: Spontaneous
  Country: US (occurrence: US)
  Receive Date: 20250701
  Receipt Date: 20251028
  Transmission Date: 20260118
  Serious: Yes (Hospitalization)
  Sender: PFIZER
  Company Number: US-PFIZER INC-202500122691

PATIENT
  Age: 42 Year
  Sex: Female

DRUGS (1)
  1. VELSIPITY [Suspect]
     Active Substance: ETRASIMOD ARGININE
     Indication: Clostridium difficile colitis
     Dosage: TABLET 2 MG, 1 TABLET, ONCE A DAY
     Route: 048

REACTIONS (6)
  - Eye disorder [Unknown]
  - Feeling abnormal [Unknown]
  - Malaise [Unknown]
  - Therapeutic product effect delayed [Unknown]
  - Drug ineffective for unapproved indication [Unknown]
  - Off label use [Unknown]

NARRATIVE: CASE EVENT DATE: 20250701
